FAERS Safety Report 10050129 (Version 1)
Quarter: 2014Q1

REPORT INFORMATION
  Report Type: Spontaneous
  Country: US (occurrence: None)
  Receive Date: 20140331
  Receipt Date: 20140331
  Transmission Date: 20141002
  Serious: Yes (Life-Threatening, Other)
  Sender: FDA-Public Use
  Company Number: None

PATIENT
  Age: 58 Year
  Sex: Female
  Weight: 58.97 kg

DRUGS (1)
  1. METHOTREXATE [Suspect]
     Indication: GUTTATE PSORIASIS
     Dosage: 1 TABLET, ONE A WEEK, TAKEN BY MOUTH
     Route: 048

REACTIONS (9)
  - Asthenia [None]
  - Balance disorder [None]
  - Full blood count abnormal [None]
  - Feeling cold [None]
  - Myocardial infarction [None]
  - Pain in extremity [None]
  - Chest discomfort [None]
  - Chills [None]
  - Confusional state [None]
